FAERS Safety Report 5792744-4 (Version None)
Quarter: 2008Q2

REPORT INFORMATION
  Report Type: 
  Country: None (occurrence: None)
  Receive Date: 20080624
  Receipt Date: 20080610
  Transmission Date: 20081010
  Serious: Yes (Death)
  Sender: FDA-Public Use
  Company Number: 2008AL005283

PATIENT
  Age: 89 Year
  Sex: Female

DRUGS (16)
  1. DIGOXIN [Suspect]
  2. OMEPRAZOLE [Concomitant]
  3. PLAVIX [Concomitant]
  4. ATACAND [Concomitant]
  5. ZETIA [Concomitant]
  6. ALDACTONE [Concomitant]
  7. TOPROL-XL [Concomitant]
  8. LASIX [Concomitant]
  9. LIPITOR [Concomitant]
  10. COLACE [Concomitant]
  11. ASPIRIN [Concomitant]
  12. GLUCOTROL [Concomitant]
  13. IMDUR [Concomitant]
  14. ALLOPURINOL [Concomitant]
  15. DOXEPIN HCL [Concomitant]
  16. VITAMIN TAB [Concomitant]

REACTIONS (5)
  - ASTHENIA [None]
  - BLOOD PRESSURE DECREASED [None]
  - PNEUMONIA [None]
  - THERAPEUTIC AGENT TOXICITY [None]
  - WEIGHT DECREASED [None]
